FAERS Safety Report 5953105-8 (Version None)
Quarter: 2008Q4

REPORT INFORMATION
  Report Type: 
  Country: None (occurrence: None)
  Receive Date: 20081114
  Receipt Date: 20081031
  Transmission Date: 20090506
  Serious: Yes (Hospitalization, Other)
  Sender: FDA-Public Use
  Company Number: US-ELI_LILLY_AND_COMPANY-US200810007672

PATIENT
  Sex: Female

DRUGS (6)
  1. EVISTA [Suspect]
     Indication: OSTEOPOROSIS
     Dosage: 60 MG, DAILY (1/D)
     Route: 065
     Dates: end: 20080801
  2. EVISTA [Suspect]
     Dosage: 60 MG, DAILY (1/D)
     Route: 065
     Dates: start: 20080101
  3. CALTRATE [Concomitant]
     Indication: SUPPLEMENTATION THERAPY
     Dosage: UNK, UNKNOWN
     Route: 065
  4. ASPIRIN [Concomitant]
     Dosage: UNK, UNKNOWN
     Route: 065
  5. ACTONEL [Concomitant]
     Indication: BONE DISORDER
     Dosage: UNK, UNKNOWN
     Route: 065
  6. MAGNESIUM SULFATE [Concomitant]
     Indication: MUSCLE SPASMS
     Dosage: UNK, UNKNOWN
     Route: 065

REACTIONS (9)
  - ATRIOVENTRICULAR BLOCK [None]
  - DIZZINESS [None]
  - EYE DISORDER [None]
  - FALL [None]
  - JOINT SWELLING [None]
  - MUSCLE SPASMS [None]
  - OEDEMA PERIPHERAL [None]
  - SPINAL FRACTURE [None]
  - WRIST FRACTURE [None]
